FAERS Safety Report 21961186 (Version 1)
Quarter: 2023Q1

REPORT INFORMATION
  Report Type: Spontaneous
  Country: IL (occurrence: IL)
  Receive Date: 20230207
  Receipt Date: 20230207
  Transmission Date: 20230417
  Serious: Yes (Other)
  Sender: FDA-Public Use
  Company Number: IL-SA-SAC20230206000940

PATIENT
  Sex: Male

DRUGS (1)
  1. DUPIXENT [Suspect]
     Active Substance: DUPILUMAB
     Dosage: UNK
     Dates: start: 2022

REACTIONS (4)
  - Cataract [Unknown]
  - Intraocular pressure increased [Unknown]
  - Visual impairment [Unknown]
  - Eye infection [Unknown]

NARRATIVE: CASE EVENT DATE: 20230101
